FAERS Safety Report 6890003-X (Version None)
Quarter: 2010Q3

REPORT INFORMATION
  Report Type: 
  Country: None (occurrence: None)
  Receive Date: 20100730
  Receipt Date: 20080711
  Transmission Date: 20110219
  Serious: No
  Sender: FDA-Public Use
  Company Number: US-PFIZER INC-2008054054

PATIENT
  Sex: Female
  Weight: 81.818 kg

DRUGS (7)
  1. LIPITOR [Suspect]
     Indication: BLOOD CHOLESTEROL
     Route: 048
     Dates: start: 20080101, end: 20080101
  2. ALLOPURINOL [Concomitant]
  3. NEXIUM [Concomitant]
  4. AVAPRO [Concomitant]
  5. SYNTHROID [Concomitant]
  6. CALCITRIOL [Concomitant]
  7. ALL OTHER THERAPEUTIC PRODUCTS [Concomitant]

REACTIONS (1)
  - MUSCLE SPASMS [None]
